FAERS Safety Report 16587644 (Version 2)
Quarter: 2019Q3

REPORT INFORMATION
  Report Type: Spontaneous
  Country: DE (occurrence: DE)
  Receive Date: 20190717
  Receipt Date: 20190724
  Transmission Date: 20191004
  Serious: No
  Sender: FDA-Public Use
  Company Number: DE-B. BRAUN MEDICAL INC.-2070953

PATIENT
  Age: 44 Year
  Sex: Male

DRUGS (2)
  1. DIPIDOLOR [Concomitant]
     Active Substance: PIRITRAMIDE
     Route: 058
  2. SODIUM CHLORIDE INJECTION USP 0264-7800-09 [Suspect]
     Active Substance: SODIUM CHLORIDE
     Indication: PAIN
     Route: 058

REACTIONS (1)
  - Injection site infection [None]
